FAERS Safety Report 19271885 (Version 1)
Quarter: 2021Q2

REPORT INFORMATION
  Report Type: Spontaneous
  Country: US (occurrence: US)
  Receive Date: 20210519
  Receipt Date: 20210519
  Transmission Date: 20210717
  Serious: No
  Sender: FDA-Public Use
  Company Number: US-NOVEN PHARMACEUTICALS, INC.-2020US005435

PATIENT
  Age: 9 Year
  Sex: Female
  Weight: 26.3 kg

DRUGS (2)
  1. DAYTRANA [Suspect]
     Active Substance: METHYLPHENIDATE
     Indication: ATTENTION DEFICIT HYPERACTIVITY DISORDER
     Dosage: 10 MG/9 HOURS
     Route: 062
     Dates: start: 20200915
  2. DAYTRANA [Suspect]
     Active Substance: METHYLPHENIDATE
     Dosage: 10 MG/9 HOURS
     Route: 062
     Dates: start: 2019, end: 202006

REACTIONS (3)
  - Drug ineffective [Not Recovered/Not Resolved]
  - Application site reaction [Not Recovered/Not Resolved]
  - Application site erythema [Not Recovered/Not Resolved]

NARRATIVE: CASE EVENT DATE: 2020
